FAERS Safety Report 12113512 (Version 3)
Quarter: 2017Q2

REPORT INFORMATION
  Report Type: Spontaneous
  Country: US (occurrence: US)
  Receive Date: 20160225
  Receipt Date: 20170424
  Transmission Date: 20170829
  Serious: Yes (Hospitalization, Other)
  Sender: FDA-Public Use
  Company Number: US-009507513-1602USA011440

PATIENT
  Age: 63 Year
  Sex: Female

DRUGS (5)
  1. WARFARIN [Concomitant]
     Active Substance: WARFARIN
     Indication: ANTICOAGULANT THERAPY
     Dosage: UNK
  2. ALENDRONATE SODIUM. [Suspect]
     Active Substance: ALENDRONATE SODIUM
     Indication: CALCIPHYLAXIS
     Dosage: 10 MG, QD
     Route: 048
  3. SODIUM THIOSULFATE [Suspect]
     Active Substance: SODIUM THIOSULFATE
     Indication: CALCIPHYLAXIS
     Dosage: 12.5 MG, BIW
     Route: 042
  4. SEVELAMER [Suspect]
     Active Substance: SEVELAMER
     Dosage: 800 MG, TID
  5. SODIUM THIOSULFATE [Suspect]
     Active Substance: SODIUM THIOSULFATE
     Dosage: 12.5 MG, TIW
     Route: 042

REACTIONS (3)
  - Cellulitis [Unknown]
  - Acute kidney injury [Unknown]
  - Off label use [Unknown]
